FAERS Safety Report 20003623 (Version 2)
Quarter: 2021Q4

REPORT INFORMATION
  Report Type: Spontaneous
  Country: US (occurrence: US)
  Receive Date: 20211028
  Receipt Date: 20211119
  Transmission Date: 20220303
  Serious: Yes (Hospitalization, Other)
  Sender: FDA-Public Use
  Company Number: US-DRREDDYS-SPO/USA/21/0142952

PATIENT
  Age: 61 Year
  Sex: Male

DRUGS (2)
  1. QUETIAPINE FUMARATE [Suspect]
     Active Substance: QUETIAPINE FUMARATE
     Indication: Sedative therapy
  2. OXYGEN [Concomitant]
     Active Substance: OXYGEN
     Indication: Lung disorder

REACTIONS (6)
  - Escherichia infection [Unknown]
  - Restrictive pulmonary disease [Unknown]
  - Pneumonia aspiration [Unknown]
  - Hiatus hernia [Unknown]
  - Gastrooesophageal reflux disease [Unknown]
  - Condition aggravated [Unknown]
